FAERS Safety Report 15366558 (Version 1)
Quarter: 2018Q3

REPORT INFORMATION
  Report Type: Spontaneous
  Country: US (occurrence: US)
  Receive Date: 20180831
  Receipt Date: 20180831
  Transmission Date: 20181010
  Serious: Yes (Life-Threatening, Hospitalization, Disabling, Other)
  Sender: FDA-Public Use
  Company Number: None

PATIENT
  Age: 55 Year
  Sex: Female
  Weight: 77.56 kg

DRUGS (12)
  1. NEXIUM [Concomitant]
     Active Substance: ESOMEPRAZOLE MAGNESIUM
  2. KEPPRA [Concomitant]
     Active Substance: LEVETIRACETAM
  3. HONEY [Concomitant]
     Active Substance: HONEY
  4. MULTI?VITAMIN [Concomitant]
     Active Substance: .ALPHA.-TOCOPHEROL ACETATE, DL-\ASCORBIC ACID\CYANOCOBALAMIN\FLUORIDE ION\FOLIC ACID\NIACIN\PYRIDOXINE\RIBOFLAVIN\THIAMINE\VITAMIN A\VITAMIN D
  5. D?3 [Concomitant]
     Active Substance: CHOLECALCIFEROL
  6. VITAMIN C [Concomitant]
     Active Substance: ASCORBIC ACID
  7. TEA [Concomitant]
     Active Substance: TEA LEAF
  8. LORAZEPAM  0.5MG [Suspect]
     Active Substance: LORAZEPAM
     Indication: EPILEPSY
     Dosage: 1/4 ? DAY ORALLY
     Route: 048
     Dates: start: 20180625, end: 20180710
  9. DILANTIN [Concomitant]
     Active Substance: PHENYTOIN
  10. NEURONTIN [Concomitant]
     Active Substance: GABAPENTIN
  11. LORAZEPAM  0.5MG [Suspect]
     Active Substance: LORAZEPAM
     Indication: MULTIPLE SCLEROSIS
     Dosage: 1/4 ? DAY ORALLY
     Route: 048
     Dates: start: 20180625, end: 20180710
  12. VITAMIN B12 [Concomitant]
     Active Substance: CYANOCOBALAMIN

REACTIONS (17)
  - Disturbance in attention [None]
  - Aggression [None]
  - Tremor [None]
  - Insomnia [None]
  - Pain [None]
  - Enuresis [None]
  - Cognitive disorder [None]
  - Frequent bowel movements [None]
  - Pollakiuria [None]
  - Dysstasia [None]
  - Unevaluable event [None]
  - Product substitution issue [None]
  - Hostility [None]
  - Logorrhoea [None]
  - Thinking abnormal [None]
  - Mobility decreased [None]
  - Fall [None]

NARRATIVE: CASE EVENT DATE: 201806
